FAERS Safety Report 10826059 (Version 3)
Quarter: 2017Q3

REPORT INFORMATION
  Report Type: Report from Study
  Country: None (occurrence: US)
  Receive Date: 20150219
  Receipt Date: 20170821
  Transmission Date: 20171127
  Serious: Yes (Other)
  Sender: FDA-Public Use
  Company Number: US-ABBVIE-14K-163-1320711-00

PATIENT
  Sex: Female

DRUGS (1)
  1. HUMIRA [Suspect]
     Active Substance: ADALIMUMAB
     Indication: RHEUMATOID ARTHRITIS
     Route: 058
     Dates: start: 20140519, end: 20141201

REACTIONS (9)
  - Lymphadenectomy [Unknown]
  - Asthenia [Unknown]
  - Nasopharyngitis [Recovered/Resolved]
  - Device breakage [Recovering/Resolving]
  - Memory impairment [Unknown]
  - Stress [Unknown]
  - Poor quality sleep [Unknown]
  - Rheumatoid arthritis [Unknown]
  - Breast disorder female [Recovering/Resolving]
